FAERS Safety Report 9749959 (Version 3)
Quarter: 2014Q1

REPORT INFORMATION
  Report Type: Report from Study
  Country: NZ (occurrence: NZ)
  Receive Date: 20131212
  Receipt Date: 20140103
  Transmission Date: 20141002
  Serious: Yes (Hospitalization)
  Sender: FDA-Public Use
  Company Number: PHHY2013NZ145634

PATIENT
  Age: 32 Year
  Sex: Male

DRUGS (1)
  1. CLOZARIL [Suspect]
     Dosage: UNK UKN, UNK
     Dates: start: 20130626

REACTIONS (1)
  - Mental impairment [Unknown]
